FAERS Safety Report 9768970 (Version 1)
Quarter: 2013Q4

REPORT INFORMATION
  Report Type: Spontaneous
  Country: GB (occurrence: None)
  Receive Date: 20131216
  Receipt Date: 20131216
  Transmission Date: 20140711
  Serious: Yes (Other)
  Sender: FDA-Public Use
  Company Number: SYM-2013-13702

PATIENT
  Age: 63 Year
  Sex: Female

DRUGS (4)
  1. METRONIDAZOLE [Suspect]
     Indication: TOOTH INFECTION
     Route: 048
     Dates: start: 20131111, end: 20131111
  2. INHALER (OTHER RESPIRATORY SYSTEM PRODUCTS) [Concomitant]
  3. SOTALOL [Concomitant]
  4. BETAHISTINE [Concomitant]

REACTIONS (2)
  - Heart rate irregular [None]
  - Heart rate increased [None]
